FAERS Safety Report 7041832-3 (Version None)
Quarter: 2010Q4

REPORT INFORMATION
  Report Type: 
  Country: None (occurrence: None)
  Receive Date: 20101013
  Receipt Date: 20101004
  Transmission Date: 20110411
  Serious: Yes (Other)
  Sender: FDA-Public Use
  Company Number: DK-ELI_LILLY_AND_COMPANY-DK201010001734

PATIENT

DRUGS (2)
  1. GEMZAR [Suspect]
     Indication: OVARIAN CANCER
     Dosage: 800 MG/M2, ON DAYS 1 AND 8, EVERY 21 DAYS
     Route: 065
  2. DOXORUBICIN HCL [Concomitant]
     Indication: NEOPLASM MALIGNANT
     Dosage: 25 MG/M2, ON DAY 1, EVERY 21 DAYS
     Route: 065

REACTIONS (1)
  - MUCOSAL INFLAMMATION [None]
